FAERS Safety Report 9687889 (Version 2)
Quarter: 2013Q4

REPORT INFORMATION
  Report Type: Spontaneous
  Country: FI (occurrence: None)
  Receive Date: 20131112
  Receipt Date: 20131114
  Transmission Date: 20140711
  Serious: Yes (Other)
  Sender: FDA-Public Use
  Company Number: SYM-2013-12450

PATIENT
  Age: 70 Year
  Sex: Male

DRUGS (1)
  1. VOXRA [Suspect]
     Indication: PRODUCT USED FOR UNKNOWN INDICATION
     Dates: start: 20131011, end: 20131019

REACTIONS (2)
  - Urinary tract infection [None]
  - Haematuria [None]
